FAERS Safety Report 25192756 (Version 1)
Quarter: 2025Q2

REPORT INFORMATION
  Report Type: Spontaneous
  Country: US (occurrence: None)
  Receive Date: 20250414
  Receipt Date: 20250414
  Transmission Date: 20250717
  Serious: Yes (unspecified)
  Sender: FDA-CTU
  Company Number: None

PATIENT
  Age: 46 Year
  Sex: Female
  Weight: 85.8 kg

DRUGS (2)
  1. RITUXAN [Suspect]
     Active Substance: RITUXIMAB
  2. RITUXAN [Concomitant]
     Active Substance: RITUXIMAB

REACTIONS (7)
  - Infusion related reaction [None]
  - Throat irritation [None]
  - Cough [None]
  - Hypersensitivity [None]
  - Oedema peripheral [None]
  - Oedema peripheral [None]
  - Palpitations [None]

NARRATIVE: CASE EVENT DATE: 20250325
